FAERS Safety Report 10019326 (Version 1)
Quarter: 2014Q1

REPORT INFORMATION
  Report Type: Spontaneous
  Country: ES (occurrence: ES)
  Receive Date: 20140318
  Receipt Date: 20140318
  Transmission Date: 20141002
  Serious: Yes (Hospitalization)
  Sender: FDA-Public Use
  Company Number: ES-CUBIST PHARMACEUTICAL, INC.-2014CBST000404

PATIENT
  Sex: 0

DRUGS (10)
  1. CUBICIN [Suspect]
     Indication: SEPSIS
     Dosage: 10 MG/KG, ONCE DAILY
     Route: 042
  2. CUBICIN [Suspect]
     Indication: ACUTE RESPIRATORY FAILURE
  3. CUBICIN [Suspect]
     Indication: OFF LABEL USE
  4. MEROPENEM [Suspect]
     Indication: SEPSIS
     Dosage: 2 G, Q8H
     Route: 042
  5. MEROPENEM [Suspect]
     Indication: ACUTE RESPIRATORY FAILURE
  6. AMOXICILLIN CLAVULANIC ACID [Suspect]
     Indication: ANTIBIOTIC PROPHYLAXIS
     Dosage: 1000/125 MG, Q8H
     Route: 042
  7. AMIKACIN [Suspect]
     Indication: SEPSIS
     Dosage: 1 G, Q24H
     Route: 065
  8. AMIKACIN [Suspect]
     Indication: ACUTE RESPIRATORY FAILURE
  9. LINEZOLID [Suspect]
     Indication: SEPSIS
     Dosage: 600 MG, Q12H
     Route: 065
  10. LINEZOLID [Suspect]
     Indication: ACUTE RESPIRATORY FAILURE

REACTIONS (2)
  - Septic shock [Recovered/Resolved]
  - Clostridium difficile colitis [Recovered/Resolved]
